FAERS Safety Report 8193128-4 (Version None)
Quarter: 2012Q1

REPORT INFORMATION
  Report Type: 
  Country: None (occurrence: None)
  Receive Date: 20120308
  Receipt Date: 20120308
  Transmission Date: 20120608
  Serious: Yes (Other)
  Sender: FDA-Public Use
  Company Number: None

PATIENT
  Age: 7 Year
  Sex: Male
  Weight: 111.13 kg

DRUGS (1)
  1. PRAVASTATIN SODIUM [Suspect]

REACTIONS (6)
  - ANGER [None]
  - THOUGHT BLOCKING [None]
  - AMNESIA [None]
  - DISTURBANCE IN ATTENTION [None]
  - MEMORY IMPAIRMENT [None]
  - FRUSTRATION [None]
